FAERS Safety Report 6236910-2 (Version None)
Quarter: 2009Q2

REPORT INFORMATION
  Report Type: 
  Country: None (occurrence: None)
  Receive Date: 20090619
  Receipt Date: 20090615
  Transmission Date: 20091009
  Serious: Yes (Death)
  Sender: FDA-Public Use
  Company Number: US-CELGENEUS-163-21880-09060061

PATIENT
  Sex: Male

DRUGS (1)
  1. REVLIMID [Suspect]
     Route: 048
     Dates: start: 20090501, end: 20090101

REACTIONS (3)
  - INTESTINAL OBSTRUCTION [None]
  - NEOPLASM PROGRESSION [None]
  - PNEUMONIA [None]
